FAERS Safety Report 8461329-3 (Version None)
Quarter: 2012Q2

REPORT INFORMATION
  Report Type: 
  Country: None (occurrence: None)
  Receive Date: 20120625
  Receipt Date: 20120613
  Transmission Date: 20120825
  Serious: Yes (Other)
  Sender: FDA-Public Use
  Company Number: CA-JNJFOC-20120607106

PATIENT
  Sex: Male
  Weight: 78.2 kg

DRUGS (5)
  1. REMICADE [Suspect]
     Route: 042
     Dates: start: 20120307
  2. REMICADE [Suspect]
     Indication: CROHN'S DISEASE
     Route: 042
     Dates: start: 20120307
  3. REMICADE [Suspect]
     Dosage: THIRD TREATMENT
     Route: 042
     Dates: start: 20120416
  4. REMICADE [Suspect]
     Indication: COLITIS
     Dosage: THIRD TREATMENT
     Route: 042
     Dates: start: 20120416
  5. IMURAN [Concomitant]
     Route: 065

REACTIONS (2)
  - DIARRHOEA [None]
  - MUSCLE SPASMS [None]
